FAERS Safety Report 8763472 (Version 2)
Quarter: 2012Q4

REPORT INFORMATION
  Report Type: 
  Country: US (occurrence: US)
  Receive Date: 20120831
  Receipt Date: 20120923
  Transmission Date: 20130627
  Serious: No
  Sender: FDA-Public Use
  Company Number: US-BIOGENIDEC-2012BI033785

PATIENT
  Age: 51 Year
  Sex: Female

DRUGS (21)
  1. TYSABRI [Suspect]
     Indication: CROHN^S DISEASE
     Route: 042
     Dates: start: 20080402
  2. CALTRATE WITH VITAMIN D [Concomitant]
  3. CHANTIX [Concomitant]
  4. CIPRO [Concomitant]
  5. CODEINE [Concomitant]
  6. COLESTID [Concomitant]
  7. CYANOCOBALAMIN [Concomitant]
  8. LIDODERM [Concomitant]
  9. LOMOTIL [Concomitant]
  10. MAXALT [Concomitant]
  11. CANASA [Concomitant]
  12. NICODERM [Concomitant]
  13. MYCOSTATIN [Concomitant]
  14. PRILOSEC [Concomitant]
  15. TINCTURE OF OPIUM [Concomitant]
  16. OXYCODONE [Concomitant]
  17. RETIN X [Concomitant]
  18. TRAZADONE [Concomitant]
  19. VALTREX [Concomitant]
  20. VERAPAMIL [Concomitant]
  21. ZOFRAN [Concomitant]

REACTIONS (3)
  - Drug specific antibody present [Unknown]
  - Fibula fracture [Recovered/Resolved]
  - Ligament sprain [Recovered/Resolved]
